FAERS Safety Report 4688375-X (Version None)
Quarter: 2005Q2

REPORT INFORMATION
  Report Type: 
  Country: None (occurrence: None)
  Receive Date: 20050609
  Receipt Date: 20050526
  Transmission Date: 20051028
  Serious: Yes (Hospitalization)
  Sender: FDA-Public Use
  Company Number: 2005067056

PATIENT
  Age: 62 Year
  Sex: Male

DRUGS (10)
  1. NICOTINE [Suspect]
     Indication: SMOKING CESSATION THERAPY
     Dosage: 21 MG, TRANSDERMAL
     Route: 062
     Dates: start: 20050329, end: 20050402
  2. PERINDOPRIL (PERINDOPRIL) [Concomitant]
  3. ACETYLSALICYLIC ACID SRT [Concomitant]
  4. DIPYRIDAMOLE (DYPYRIDAMOLE) [Concomitant]
  5. SERTRALINE HCL [Concomitant]
  6. ATORVASTATIN CALCIUM [Concomitant]
  7. ACETAMINOPHEN [Concomitant]
  8. DIHYDROCODEINE (DIHYDROCODEINE) [Concomitant]
  9. GLYCERYL TRINITRATE (GLYCERYL TRINITRATE) [Concomitant]
  10. TERBUTALINE SULFATE [Concomitant]

REACTIONS (6)
  - CEREBROVASCULAR ACCIDENT [None]
  - DIZZINESS [None]
  - FACIAL PALSY [None]
  - HYPERHIDROSIS [None]
  - INCORRECT DOSE ADMINISTERED [None]
  - NAUSEA [None]
